FAERS Safety Report 7054215-7 (Version None)
Quarter: 2010Q4

REPORT INFORMATION
  Report Type: 
  Country: None (occurrence: None)
  Receive Date: 20101020
  Receipt Date: 20101007
  Transmission Date: 20110411
  Serious: Yes (Hospitalization, Other)
  Sender: FDA-Public Use
  Company Number: PHEH2007US12717

PATIENT
  Sex: Male

DRUGS (22)
  1. ZOMETA [Suspect]
     Indication: MULTIPLE MYELOMA
  2. AREDIA [Suspect]
     Indication: MULTIPLE MYELOMA
  3. RADIATION TREATMENT [Concomitant]
  4. THALIDOMIDE [Concomitant]
  5. DECADRON [Concomitant]
  6. REVLIMID [Concomitant]
  7. ATIVAN [Concomitant]
  8. MAXZIDE [Concomitant]
  9. CARAFATE [Concomitant]
  10. COUMADIN [Concomitant]
  11. OXYCONTIN [Concomitant]
  12. KLONOPIN [Concomitant]
  13. PHOS-NAK [Concomitant]
  14. KLOR-CON [Concomitant]
  15. VORICONAZOLE [Concomitant]
  16. LOMOTIL [Concomitant]
  17. ARTHROTEC [Concomitant]
  18. CHOLESTYRAMINE RESIN [Concomitant]
  19. GABAPENTIN [Concomitant]
  20. FLOMAX [Concomitant]
     Dosage: UNK
  21. DIPHENOXYLATE HCL AND ATROPINE SULFATE [Concomitant]
  22. K-DUR [Concomitant]

REACTIONS (76)
  - ABSCESS [None]
  - ANAEMIA [None]
  - ANHEDONIA [None]
  - ANXIETY [None]
  - ASTHENIA [None]
  - BACK PAIN [None]
  - BLOOD PRESSURE INCREASED [None]
  - BONE DEBRIDEMENT [None]
  - BONE DISORDER [None]
  - BONE LESION [None]
  - BRONCHOPULMONARY ASPERGILLOSIS [None]
  - CELLULITIS [None]
  - CENTRAL VENOUS CATHETERISATION [None]
  - COMPRESSION FRACTURE [None]
  - CONFUSIONAL STATE [None]
  - DECUBITUS ULCER [None]
  - DEFORMITY [None]
  - DEHYDRATION [None]
  - DEPRESSION [None]
  - DIARRHOEA [None]
  - DISCOMFORT [None]
  - DIVERTICULUM [None]
  - DIZZINESS [None]
  - DYSKINESIA [None]
  - DYSSTASIA [None]
  - EMOTIONAL DISTRESS [None]
  - ENTEROCOCCAL BACTERAEMIA [None]
  - FALL [None]
  - FATIGUE [None]
  - GAIT DISTURBANCE [None]
  - GINGIVAL DISORDER [None]
  - HAEMATURIA [None]
  - HAEMORRHOIDS [None]
  - HEADACHE [None]
  - HYPOKALAEMIA [None]
  - HYPOMAGNESAEMIA [None]
  - HYPOPHAGIA [None]
  - HYPOPHOSPHATAEMIA [None]
  - HYPOTENSION [None]
  - INCISIONAL DRAINAGE [None]
  - INJURY [None]
  - INTERVERTEBRAL DISC PROTRUSION [None]
  - LETHARGY [None]
  - LEUKOCYTOSIS [None]
  - LITHOTRIPSY [None]
  - MUSCULAR WEAKNESS [None]
  - NASOPHARYNGITIS [None]
  - NEPHROLITHIASIS [None]
  - NEURITIS [None]
  - OEDEMA [None]
  - OEDEMA PERIPHERAL [None]
  - ORAL HERPES [None]
  - OSTEOMYELITIS [None]
  - OSTEONECROSIS OF JAW [None]
  - PAIN [None]
  - PAIN IN EXTREMITY [None]
  - PAIN IN JAW [None]
  - PANCYTOPENIA [None]
  - PARAESTHESIA [None]
  - PERONEAL NERVE PALSY [None]
  - PNEUMONIA [None]
  - POSTOPERATIVE WOUND COMPLICATION [None]
  - PYREXIA [None]
  - RADICULITIS LUMBOSACRAL [None]
  - RENAL FAILURE [None]
  - RESPIRATORY DISORDER [None]
  - SEPSIS [None]
  - SEPTIC SHOCK [None]
  - SKIN LESION [None]
  - SPINAL FRACTURE [None]
  - SPINAL LAMINECTOMY [None]
  - STREPTOCOCCAL BACTERAEMIA [None]
  - TACHYCARDIA [None]
  - THROMBOCYTOPENIA [None]
  - TOOTH EXTRACTION [None]
  - VERTEBROPLASTY [None]
